FAERS Safety Report 6116606-8 (Version None)
Quarter: 2009Q1

REPORT INFORMATION
  Report Type: 
  Country: None (occurrence: None)
  Receive Date: 20090314
  Receipt Date: 20081217
  Transmission Date: 20090719
  Serious: No
  Sender: FDA-Public Use
  Company Number: US-ABBOTT-08P-163-0493498-00

PATIENT
  Sex: Male
  Weight: 136.2 kg

DRUGS (4)
  1. HUMIRA [Suspect]
     Indication: PSORIASIS
     Route: 058
     Dates: start: 20080201, end: 20081127
  2. HUMIRA [Suspect]
     Route: 058
  3. TRIAMCINOLONE [Concomitant]
     Indication: PSORIASIS
     Route: 061
  4. METHOTREXATE [Concomitant]
     Indication: PSORIASIS
     Route: 048
     Dates: start: 20081127

REACTIONS (3)
  - DRUG EFFECT DECREASED [None]
  - GASTROENTERITIS VIRAL [None]
  - PSORIASIS [None]
